FAERS Safety Report 6269776-5 (Version None)
Quarter: 2009Q3

REPORT INFORMATION
  Report Type: 
  Country: None (occurrence: None)
  Receive Date: 20090716
  Receipt Date: 20090623
  Transmission Date: 20100115
  Serious: Yes (Other)
  Sender: FDA-Public Use
  Company Number: JP-ASTRAZENECA-2009SE03683

PATIENT
  Age: 42 Year
  Sex: Female

DRUGS (9)
  1. SEROQUEL [Suspect]
     Indication: SCHIZOPHRENIA
     Route: 048
     Dates: start: 20071201
  2. LOSIZOPILON [Suspect]
     Route: 048
  3. BARNETIL [Suspect]
     Route: 048
  4. IMPROMEN [Suspect]
     Route: 048
  5. RISPERDAL [Suspect]
     Route: 048
  6. LEVOTOMIN [Suspect]
     Route: 048
  7. CONTOMIN [Suspect]
     Route: 048
  8. TEGRETOL [Suspect]
     Route: 048
  9. LONASEN [Suspect]
     Route: 048

REACTIONS (1)
  - GRANULOCYTE COUNT DECREASED [None]
